FAERS Safety Report 22392446 (Version 10)
Quarter: 2025Q1

REPORT INFORMATION
  Report Type: Spontaneous
  Country: JP (occurrence: JP)
  Receive Date: 20230601
  Receipt Date: 20250225
  Transmission Date: 20250408
  Serious: Yes (Hospitalization, Other)
  Sender: AMGEN
  Company Number: JP-AMGEN-JPNSP2022218772

PATIENT
  Age: 80 Year
  Sex: Male

DRUGS (11)
  1. REPATHA [Suspect]
     Active Substance: EVOLOCUMAB
     Indication: Low density lipoprotein increased
     Dosage: 140 MILLIGRAM, Q2WK
     Route: 058
  2. REPATHA [Suspect]
     Active Substance: EVOLOCUMAB
     Indication: Type IIa hyperlipidaemia
     Dosage: 140 MILLIGRAM, Q3WK
     Route: 058
  3. REPATHA [Suspect]
     Active Substance: EVOLOCUMAB
     Indication: Hypercholesterolaemia
     Dosage: 140 MILLIGRAM, Q2WK
     Route: 058
  4. ASPIRIN [Concomitant]
     Active Substance: ASPIRIN
  5. LIPITOR [Concomitant]
     Active Substance: ATORVASTATIN CALCIUM
  6. ZETIA [Concomitant]
     Active Substance: EZETIMIBE
  7. ELOBIXIBAT [Concomitant]
     Active Substance: ELOBIXIBAT
  8. MAGNESIUM OXIDE [Concomitant]
     Active Substance: MAGNESIUM OXIDE
  9. DAYVIGO [Concomitant]
     Active Substance: LEMBOREXANT
  10. BROTIZOLAM [Concomitant]
     Active Substance: BROTIZOLAM
  11. BROTIZOLAM [Concomitant]
     Active Substance: BROTIZOLAM

REACTIONS (25)
  - Dizziness [Not Recovered/Not Resolved]
  - Hypersensitivity [Unknown]
  - Myocardial infarction [Unknown]
  - Low density lipoprotein decreased [Unknown]
  - Angina pectoris [Unknown]
  - Senile dementia [Unknown]
  - Low density lipoprotein increased [Unknown]
  - Vascular occlusion [Unknown]
  - Drug eruption [Unknown]
  - Injection site pain [Unknown]
  - Cerebral haemorrhage [Unknown]
  - Epistaxis [Unknown]
  - Off label use [Unknown]
  - Administration site pain [Unknown]
  - Constipation [Unknown]
  - Gastrointestinal disorder [Unknown]
  - Diarrhoea [Unknown]
  - Gastrointestinal hypomotility [Unknown]
  - Flatulence [Unknown]
  - Abdominal pain [Unknown]
  - Loss of personal independence in daily activities [Unknown]
  - Vision blurred [Unknown]
  - Decreased appetite [Unknown]
  - Hypophagia [Unknown]
  - Feeling abnormal [Not Recovered/Not Resolved]
